FAERS Safety Report 7413901-7 (Version None)
Quarter: 2011Q2

REPORT INFORMATION
  Report Type: 
  Country: None (occurrence: None)
  Receive Date: 20110414
  Receipt Date: 20110405
  Transmission Date: 20111010
  Serious: Yes (Hospitalization)
  Sender: FDA-Public Use
  Company Number: US-BIOGENIDEC-2011BI012833

PATIENT
  Age: 54 Year
  Sex: Female

DRUGS (5)
  1. MEDICATION (NOS) [Concomitant]
  2. TYSABRI [Suspect]
     Indication: MULTIPLE SCLEROSIS
     Route: 042
     Dates: start: 20070831, end: 20100308
  3. TYSABRI [Suspect]
     Route: 042
     Dates: start: 20110322
  4. AVONEX [Concomitant]
     Route: 030
     Dates: start: 20100701
  5. AVONEX [Concomitant]
     Indication: MULTIPLE SCLEROSIS
     Route: 030
     Dates: start: 19960701, end: 20010101

REACTIONS (5)
  - OEDEMA PERIPHERAL [None]
  - PARALYSIS [None]
  - ASTHENIA [None]
  - PYREXIA [None]
  - URINARY TRACT INFECTION [None]
